FAERS Safety Report 4661687-1 (Version None)
Quarter: 2005Q2

REPORT INFORMATION
  Report Type: 
  Country: None (occurrence: None)
  Receive Date: 20050502
  Receipt Date: 20050123
  Transmission Date: 20051028
  Serious: No
  Sender: FDA-Public Use
  Company Number: 200510577US

PATIENT

DRUGS (5)
  1. KETEK [Suspect]
  2. FLUTICASONE PROPIONATE [Concomitant]
  3. SALMETEROL XINAFOATE (ADVAIR) [Concomitant]
  4. ALBUTEROL [Concomitant]
  5. MONTELUKAST SODIUM [Concomitant]

REACTIONS (2)
  - EYELID DISORDER [None]
  - PRURITUS [None]
